FAERS Safety Report 10871048 (Version 1)
Quarter: 2015Q1

REPORT INFORMATION
  Report Type: Spontaneous
  Country: US (occurrence: US)
  Receive Date: 20150226
  Receipt Date: 20150226
  Transmission Date: 20150721
  Serious: Yes (Death)
  Sender: FDA-Public Use
  Company Number: US-BANPHARM-20153555

PATIENT
  Age: 45 Year
  Sex: Male

DRUGS (3)
  1. ACETHAMINOPHEN [Concomitant]
  2. VALPROIC ACID UNKNOWN PRODUCT [Suspect]
     Active Substance: VALPROIC ACID
  3. SALICYLATES NOS [Concomitant]
     Active Substance: UNSPECIFIED INGREDIENT

REACTIONS (1)
  - Death [Fatal]
